FAERS Safety Report 24425555 (Version 1)
Quarter: 2024Q4

REPORT INFORMATION
  Report Type: Report from Study
  Country: IE (occurrence: IE)
  Receive Date: 20241011
  Receipt Date: 20241011
  Transmission Date: 20250114
  Serious: Yes (Hospitalization)
  Sender: AMGEN
  Company Number: IE-Accord-448210

PATIENT
  Age: 63 Year
  Sex: Female

DRUGS (1)
  1. PEGFILGRASTIM [Suspect]
     Active Substance: PEGFILGRASTIM
     Indication: Product used for unknown indication
     Dosage: DOSAGE: 6 MG/0.6 ML, POWDER FOR MIXING VSUBCUTIAL
     Route: 058
     Dates: start: 20240918

REACTIONS (4)
  - COVID-19 [Recovering/Resolving]
  - Administration site pain [Unknown]
  - Incorrect dose administered [Unknown]
  - Exposure via skin contact [Unknown]

NARRATIVE: CASE EVENT DATE: 20240918
